FAERS Safety Report 5923864-9 (Version None)
Quarter: 2008Q4

REPORT INFORMATION
  Report Type: 
  Country: None (occurrence: None)
  Receive Date: 20081020
  Receipt Date: 20081009
  Transmission Date: 20090506
  Serious: Yes (Other)
  Sender: FDA-Public Use
  Company Number: DE-ROCHE-569651

PATIENT
  Sex: Male
  Weight: 62 kg

DRUGS (11)
  1. MIRCERA [Suspect]
     Route: 042
     Dates: start: 20071030
  2. BISOPROLOL FUMARATE [Concomitant]
     Dosage: INDICATION: HEART FAILURE/ATRIAL FIBRILLATION. GIVEN FOR YEARS.
     Route: 048
  3. FUROSEMID [Concomitant]
     Dosage: INDICATION: HEART FAILURE/RENAL FAILURE. GIVEN FOR YEARS.
     Route: 048
  4. ASPIRIN [Concomitant]
     Route: 048
     Dates: start: 20070508
  5. PREDNISOLONE [Concomitant]
     Dates: start: 20061218
  6. FERRLECIT [Concomitant]
     Route: 042
     Dates: start: 20061219
  7. CALCITRIOL [Concomitant]
     Dosage: DOSE RECEIVED ON MONDAY, TUESDAY, THURSDAY AND SATURDAY EVERY WEEK
  8. PREDNI H [Concomitant]
  9. LEVOTHYROXINE SODIUM [Concomitant]
     Dosage: DRUG NAME REPORTED AS L-THYROXIN 50
  10. DREISAVIT N [Concomitant]
  11. MCP-RATIOPHARM [Concomitant]
     Dosage: RECEIVED 15 TO 20 DROPS DAILY

REACTIONS (5)
  - GINGIVAL BLEEDING [None]
  - HAEMORRHOIDAL HAEMORRHAGE [None]
  - IMPAIRED HEALING [None]
  - INTESTINAL HAEMORRHAGE [None]
  - RENAL CELL CARCINOMA [None]
